FAERS Safety Report 6771873-2 (Version None)
Quarter: 2010Q2

REPORT INFORMATION
  Report Type: 
  Country: None (occurrence: None)
  Receive Date: 20100616
  Receipt Date: 20091211
  Transmission Date: 20101027
  Serious: No
  Sender: FDA-Public Use
  Company Number: US-ASTRAZENECA-2009SE31461

PATIENT
  Sex: Female

DRUGS (2)
  1. ENTOCORT EC [Suspect]
     Route: 048
  2. ENTOCORT EC [Suspect]
     Route: 048

REACTIONS (3)
  - ADRENAL DISORDER [None]
  - DIARRHOEA [None]
  - INFLUENZA [None]
